FAERS Safety Report 8545936-5 (Version None)
Quarter: 2012Q3

REPORT INFORMATION
  Report Type: 
  Country: None (occurrence: None)
  Receive Date: 20120727
  Receipt Date: 20111123
  Transmission Date: 20120928
  Serious: No
  Sender: FDA-Public Use
  Company Number: US-ASTRAZENECA-2011SE71167

PATIENT
  Age: 57 Year
  Sex: Male
  Weight: 83.9 kg

DRUGS (3)
  1. SEROQUEL XR [Suspect]
     Indication: ANXIETY
     Route: 048
  2. SEROQUEL XR [Suspect]
     Indication: DEPRESSION
     Route: 048
  3. ZOLOFT [Concomitant]

REACTIONS (5)
  - DRUG DOSE OMISSION [None]
  - NERVOUSNESS [None]
  - MOOD ALTERED [None]
  - MALAISE [None]
  - FEELING ABNORMAL [None]
